FAERS Safety Report 6055058-3 (Version None)
Quarter: 2009Q1

REPORT INFORMATION
  Report Type: 
  Country: None (occurrence: None)
  Receive Date: 20090122
  Receipt Date: 20090115
  Transmission Date: 20090719
  Serious: Yes (Death, Hospitalization, Other)
  Sender: FDA-Public Use
  Company Number: CLOF-1000073

PATIENT
  Age: 9 Year
  Sex: Female
  Weight: 34 kg

DRUGS (11)
  1. CLOFARABINE (CLOFARABINE) SOLUTION FOR INFUSION [Suspect]
     Indication: ACUTE LYMPHOCYTIC LEUKAEMIA
     Dosage: 52 MG/M2, QDX5, INTRAVENOUS, 40 MG/M2, QDX5, INTRAVENOUS
     Route: 042
     Dates: start: 20070101, end: 20070101
  2. CLOFARABINE (CLOFARABINE) SOLUTION FOR INFUSION [Suspect]
     Indication: ACUTE LYMPHOCYTIC LEUKAEMIA
     Dosage: 52 MG/M2, QDX5, INTRAVENOUS, 40 MG/M2, QDX5, INTRAVENOUS
     Route: 042
     Dates: start: 20080214, end: 20080218
  3. FILGRASTIM (FILGRASTIM) [Concomitant]
  4. PENTAMIDINE (PENTAMIDINE) [Concomitant]
  5. FLUCONAZOLE [Concomitant]
  6. PENICILLIN NOS (PENICILLIN NOS) [Concomitant]
  7. LEVOTHYROXINE SODIUM [Concomitant]
  8. LANSOPRAZOLE [Concomitant]
  9. MELATONIN (MELATONIN) [Concomitant]
  10. NITROFURANTOIN [Concomitant]
  11. HEPARIN [Concomitant]

REACTIONS (16)
  - ABDOMINAL PAIN [None]
  - ACTIVATED PARTIAL THROMBOPLASTIN TIME PROLONGED [None]
  - ARTERIAL OCCLUSIVE DISEASE [None]
  - ASTHENIA [None]
  - BONE MARROW TRANSPLANT [None]
  - CEREBRAL INFARCTION [None]
  - CEREBROVASCULAR ACCIDENT [None]
  - DEHYDRATION [None]
  - DIARRHOEA [None]
  - HEMIPLEGIA [None]
  - HYPOAESTHESIA [None]
  - PALMAR-PLANTAR ERYTHRODYSAESTHESIA SYNDROME [None]
  - PULMONARY OEDEMA [None]
  - RADIATION INJURY [None]
  - SKIN HYPERTROPHY [None]
  - VASCULITIS [None]
